FAERS Safety Report 7948475-5 (Version None)
Quarter: 2011Q4

REPORT INFORMATION
  Report Type: 
  Country: None (occurrence: None)
  Receive Date: 20111130
  Receipt Date: 20111123
  Transmission Date: 20120403
  Serious: Yes (Death, Hospitalization)
  Sender: FDA-Public Use
  Company Number: CN-ASTELLAS-2011JP008150

PATIENT
  Age: 41 Year
  Sex: Male

DRUGS (2)
  1. TACROLIMUS [Suspect]
     Indication: RENAL TRANSPLANT
     Dosage: 2.25 MG, UNKNOWN/D
     Route: 048
     Dates: start: 20060101
  2. MYCOPHENOLATE MOFETIL (CELLCEPT) [Concomitant]
     Dosage: UNK
     Route: 065

REACTIONS (8)
  - BRAIN OEDEMA [None]
  - DEATH [None]
  - CONFUSIONAL STATE [None]
  - PYREXIA [None]
  - SPEECH DISORDER [None]
  - MENINGITIS CRYPTOCOCCAL [None]
  - LOCALISED OEDEMA [None]
  - GAIT DISTURBANCE [None]
